FAERS Safety Report 14402935 (Version 10)
Quarter: 2019Q1

REPORT INFORMATION
  Report Type: Spontaneous
  Country: US (occurrence: US)
  Receive Date: 20180117
  Receipt Date: 20190221
  Transmission Date: 20190417
  Serious: Yes (Death, Hospitalization, Other)
  Sender: FDA-Public Use
  Company Number: US-PFIZER INC-2017529119

PATIENT
  Age: 46 Year
  Sex: Female

DRUGS (5)
  1. ELELYSO [Suspect]
     Active Substance: TALIGLUCERASE ALFA
     Indication: GAUCHER^S DISEASE
     Dosage: UNK
     Dates: end: 20171107
  2. ELELYSO [Suspect]
     Active Substance: TALIGLUCERASE ALFA
     Dosage: UNK, TWICE WEEKLY
     Dates: start: 201803
  3. ELELYSO [Suspect]
     Active Substance: TALIGLUCERASE ALFA
     Dosage: 3200 IU, UNK [EVERY 14 DAYS]
     Route: 042
  4. ADDERALL [Concomitant]
     Active Substance: AMPHETAMINE ASPARTATE\AMPHETAMINE SULFATE\DEXTROAMPHETAMINE SACCHARATE\DEXTROAMPHETAMINE SULFATE
     Dosage: UNK
  5. ELELYSO [Suspect]
     Active Substance: TALIGLUCERASE ALFA
     Dosage: UNK
     Dates: start: 20180327

REACTIONS (11)
  - Somnolence [Not Recovered/Not Resolved]
  - Pyrexia [Unknown]
  - Balance disorder [Unknown]
  - Oral pain [Not Recovered/Not Resolved]
  - Cystitis [Recovered/Resolved]
  - Bone pain [Unknown]
  - Death [Fatal]
  - Malaise [Not Recovered/Not Resolved]
  - Dreamy state [Not Recovered/Not Resolved]
  - Insomnia [Unknown]
  - Psychotic disorder [Unknown]

NARRATIVE: CASE EVENT DATE: 2011
